FAERS Safety Report 7007489-2 (Version None)
Quarter: 2010Q3

REPORT INFORMATION
  Report Type: 
  Country: None (occurrence: None)
  Receive Date: 20100920
  Receipt Date: 20100601
  Transmission Date: 20110219
  Serious: Yes (Disabling, Other)
  Sender: FDA-Public Use
  Company Number: ACO_00844_2010

PATIENT
  Age: 64 Year
  Sex: Female
  Weight: 77.1115 kg

DRUGS (10)
  1. AMPYRA [Suspect]
     Indication: MULTIPLE SCLEROSIS
     Dosage: 10 MG BID ORAL
     Route: 048
     Dates: start: 20100423, end: 20100428
  2. PRAVASTATIN [Concomitant]
  3. LISINOPRIL [Concomitant]
  4. OXAZEPAM [Concomitant]
  5. XANAX [Concomitant]
  6. NEXIUM [Concomitant]
  7. EFFEXOR XR [Concomitant]
  8. FOCALIN [Concomitant]
  9. VITAMIN D [Concomitant]
  10. TYSABRI [Concomitant]

REACTIONS (1)
  - ABASIA [None]
